FAERS Safety Report 5728415-X (Version None)
Quarter: 2008Q2

REPORT INFORMATION
  Report Type: 
  Country: None (occurrence: None)
  Receive Date: 20080506
  Receipt Date: 20080430
  Transmission Date: 20081010
  Serious: Yes (Other)
  Sender: FDA-Public Use
  Company Number: US-BRISTOL-MYERS SQUIBB COMPANY-14174460

PATIENT

DRUGS (2)
  1. TRIAMCINOLONE ACETONIDE [Suspect]
     Dosage: ROUTE - INTRAVITREAL; FORM = INJECTION
     Route: 031
  2. VISUDYNE [Suspect]

REACTIONS (1)
  - CHORIORETINAL DISORDER [None]
